FAERS Safety Report 6086274-2 (Version None)
Quarter: 2009Q1

REPORT INFORMATION
  Report Type: 
  Country: None (occurrence: None)
  Receive Date: 20090220
  Receipt Date: 20090218
  Transmission Date: 20090719
  Serious: Yes (Death)
  Sender: FDA-Public Use
  Company Number: US-B.I. PHARMACEUTICALS,INC./RIDGEFIELD-2009-BP-02053BP

PATIENT
  Sex: Male

DRUGS (3)
  1. MELOXICAM [Suspect]
     Indication: OSTEOARTHRITIS
     Route: 048
     Dates: start: 20060101
  2. MELOXICAM [Suspect]
     Indication: ARTHRITIS
  3. DEXEDRINE [Concomitant]
     Indication: ATTENTION DEFICIT/HYPERACTIVITY DISORDER
     Route: 048
     Dates: start: 20000101, end: 20080101

REACTIONS (1)
  - MARFAN'S SYNDROME [None]
